FAERS Safety Report 5440440-5 (Version None)
Quarter: 2007Q3

REPORT INFORMATION
  Report Type: 
  Country: None (occurrence: None)
  Receive Date: 20070831
  Receipt Date: 20070817
  Transmission Date: 20080115
  Serious: Yes (Hospitalization)
  Sender: FDA-Public Use
  Company Number: JP-ROCHE-505733

PATIENT
  Age: 77 Year
  Sex: Male

DRUGS (8)
  1. TICLOPIDINE HCL [Suspect]
     Indication: CORONARY ARTERIAL STENT INSERTION
     Dosage: GENERIC REPORTED AS ^TICLOPIDINE HYDROCHLORIDE^. ROUTE NOT PROVIDED. ADDITIONAL INDICATION: ANGINA +
     Route: 048
     Dates: start: 20070418, end: 20070530
  2. OMEPRAZOLE [Suspect]
     Indication: DRUG USE FOR UNKNOWN INDICATION
     Route: 065
     Dates: start: 20070425, end: 20070613
  3. ASPIRIN [Concomitant]
     Indication: ANGINA PECTORIS
     Dosage: SECOND INDICATION, ARTERIOSCLEROSIS OBLITERANS
     Dates: end: 20070621
  4. MICARDIS [Concomitant]
     Indication: HYPERTENSION
     Dosage: DURATION REPORTED: 6 WEEKS, 6 DAYS
     Dates: start: 20070418, end: 20070604
  5. ALLOPURINOL [Concomitant]
     Dates: end: 20070607
  6. ANPLAG [Concomitant]
     Indication: ARTERIOSCLEROSIS OBLITERANS
     Dosage: DURATION: 10 WEEKS 0 DAYS
     Dates: start: 20070330, end: 20070607
  7. LASIX [Concomitant]
     Indication: RENAL FAILURE CHRONIC
     Dosage: DURATION: 3 WEEKS 2 DAYS
     Dates: start: 20070522, end: 20070613
  8. DOXAZOSIN MESYLATE [Concomitant]
     Indication: HYPERTENSION
     Dosage: DURATION: 1 WEEK 5 DAYS
     Dates: start: 20070519, end: 20070530

REACTIONS (2)
  - CHOLESTASIS [None]
  - TOXIC EPIDERMAL NECROLYSIS [None]
